FAERS Safety Report 4340541-9 (Version None)
Quarter: 2004Q2

REPORT INFORMATION
  Report Type: 
  Country: None (occurrence: None)
  Receive Date: 20040414
  Receipt Date: 20040401
  Transmission Date: 20050107
  Serious: No
  Sender: FDA-Public Use
  Company Number: 2004022258

PATIENT
  Age: 37 Year
  Sex: Male

DRUGS (1)
  1. SILDENAFIL (SILDENAFIL) [Suspect]
     Indication: ERECTILE DYSFUNCTION
     Dosage: 100 MG (TWICE WEEKLY)

REACTIONS (9)
  - ABNORMAL SENSATION IN EYE [None]
  - BLINDNESS UNILATERAL [None]
  - CHROMATOPSIA [None]
  - DIZZINESS [None]
  - DYSPEPSIA [None]
  - MEDICATION ERROR [None]
  - NASAL CONGESTION [None]
  - PHOTOPHOBIA [None]
  - RETINOPATHY [None]
